FAERS Safety Report 20648983 (Version 1)
Quarter: 2022Q1

REPORT INFORMATION
  Report Type: Other
  Country: TR (occurrence: None)
  Receive Date: 20220329
  Receipt Date: 20220329
  Transmission Date: 20220423
  Serious: Yes (Other)
  Sender: FDA-Public Use
  Company Number: TR-ROCHE-3056786

PATIENT
  Age: 55 Year
  Sex: Male

DRUGS (3)
  1. ALECTINIB [Suspect]
     Active Substance: ALECTINIB
     Indication: Lung adenocarcinoma
     Route: 065
  2. CRIZOTINIB [Concomitant]
     Active Substance: CRIZOTINIB
     Indication: Lung adenocarcinoma
  3. BRIGATINIB [Concomitant]
     Active Substance: BRIGATINIB
     Indication: Lung adenocarcinoma

REACTIONS (4)
  - Metastases to central nervous system [Unknown]
  - Metastases to bone [Unknown]
  - Disease progression [Unknown]
  - Drug ineffective [Unknown]
